FAERS Safety Report 9637033 (Version 1)
Quarter: 2013Q4

REPORT INFORMATION
  Report Type: Spontaneous
  Country: SE (occurrence: SE)
  Receive Date: 20131022
  Receipt Date: 20131022
  Transmission Date: 20140711
  Serious: Yes (Other)
  Sender: FDA-Public Use
  Company Number: SE-RANBAXY-2013R1-74386

PATIENT
  Age: 60 Year
  Sex: Female

DRUGS (1)
  1. SERTRALINE [Suspect]
     Indication: PRODUCT USED FOR UNKNOWN INDICATION
     Dosage: UNK
     Route: 065

REACTIONS (8)
  - C-reactive protein increased [Unknown]
  - Headache [Unknown]
  - Pyrexia [Unknown]
  - Eosinophilia [Unknown]
  - Epistaxis [Unknown]
  - Lung infiltration [Unknown]
  - Dyspnoea [Unknown]
  - Cough [Unknown]
